FAERS Safety Report 4725998-3 (Version None)
Quarter: 2005Q3

REPORT INFORMATION
  Report Type: 
  Country: None (occurrence: None)
  Receive Date: 20050725
  Receipt Date: 20050216
  Transmission Date: 20060218
  Serious: Yes (Death)
  Sender: FDA-Public Use
  Company Number: WAES 0502USA02584

PATIENT
  Age: 81 Year
  Sex: Female

DRUGS (3)
  1. PRIMAXIN [Suspect]
     Indication: PNEUMONIA
     Dosage: 0.5 GM/BID IV
     Route: 042
     Dates: start: 20020508, end: 20020515
  2. INJ FLUMARIN (FLOMOXEF SODIUM) [Suspect]
     Indication: PNEUMONIA
     Dosage: 1 GM/BID IV
     Route: 042
     Dates: start: 20020516, end: 20020524
  3. INJ CARBENIN (BETAMIPRON (+) PANIPENEM) [Suspect]
     Indication: PNEUMONIA
     Dosage: 0.5 GM/BID IV
     Route: 042
     Dates: start: 20020427, end: 20020507

REACTIONS (2)
  - CLOSTRIDIUM COLITIS [None]
  - PNEUMONIA ASPIRATION [None]
